FAERS Safety Report 5225955-7 (Version None)
Quarter: 2007Q1

REPORT INFORMATION
  Report Type: 
  Country: None (occurrence: None)
  Receive Date: 20070201
  Receipt Date: 20070126
  Transmission Date: 20070707
  Serious: Yes (Hospitalization, Other)
  Sender: FDA-Public Use
  Company Number: US-AVENTIS-200710585US

PATIENT
  Sex: Female
  Weight: 72.19 kg

DRUGS (2)
  1. RIFAMPIN [Suspect]
     Dosage: DOSE: UNK
     Route: 042
  2. RIFAMPIN [Suspect]
     Dosage: DOSE: UNK
     Route: 048

REACTIONS (3)
  - CONVULSION [None]
  - PULMONARY OEDEMA [None]
  - RESPIRATORY DISTRESS [None]
